FAERS Safety Report 21177193 (Version 1)
Quarter: 2022Q3

REPORT INFORMATION
  Report Type: Spontaneous
  Country: RO (occurrence: RO)
  Receive Date: 20220805
  Receipt Date: 20220805
  Transmission Date: 20221027
  Serious: Yes (Life-Threatening, Hospitalization)
  Sender: FDA-Public Use
  Company Number: None

PATIENT
  Age: 74 Year
  Sex: Male
  Weight: 68 kg

DRUGS (2)
  1. PEMETREXED [Suspect]
     Active Substance: PEMETREXED
     Indication: Malignant respiratory tract neoplasm
     Dosage: 500 MG/ SQUARE METER,  DURATION : :74 DAYS
     Route: 065
     Dates: start: 20220421, end: 20220704
  2. CARBOPLATIN [Suspect]
     Active Substance: CARBOPLATIN
     Indication: Malignant respiratory tract neoplasm
     Dosage: CARBOPLATIN AUC 5, DURATION : 74 DAYS
     Route: 065
     Dates: start: 20220421, end: 20220704

REACTIONS (2)
  - Febrile neutropenia [Unknown]
  - Septic shock [Unknown]

NARRATIVE: CASE EVENT DATE: 20220714
